FAERS Safety Report 6267146-7 (Version None)
Quarter: 2009Q3

REPORT INFORMATION
  Report Type: 
  Country: None (occurrence: None)
  Receive Date: 20090714
  Receipt Date: 20090701
  Transmission Date: 20100115
  Serious: Yes (Hospitalization)
  Sender: FDA-Public Use
  Company Number: JP-ASTRAZENECA-2009SE04071

PATIENT
  Age: 77 Year
  Sex: Female

DRUGS (8)
  1. BLOPRESS TABLETS 4 [Suspect]
     Indication: HYPERTENSION
     Route: 048
     Dates: start: 20080917, end: 20090515
  2. CERCINE [Concomitant]
     Route: 048
     Dates: end: 20090603
  3. TAKEPRON [Concomitant]
     Route: 048
     Dates: end: 20090603
  4. VOLTAREN [Concomitant]
     Route: 065
     Dates: end: 20090603
  5. ALESION [Concomitant]
     Route: 048
     Dates: end: 20090603
  6. ZESULAN [Concomitant]
     Route: 048
     Dates: end: 20090603
  7. MEVALOTIN [Concomitant]
     Route: 048
     Dates: end: 20090603
  8. GASMOTIN [Concomitant]
     Route: 048
     Dates: end: 20090603

REACTIONS (1)
  - LIVER DISORDER [None]
